FAERS Safety Report 10032212 (Version 2)
Quarter: 2014Q2

REPORT INFORMATION
  Report Type: Spontaneous
  Country: US (occurrence: US)
  Receive Date: 20140324
  Receipt Date: 20140410
  Transmission Date: 20141212
  Serious: Yes (Other)
  Sender: FDA-Public Use
  Company Number: US-TEVA-470229USA

PATIENT
  Age: 27 Year
  Sex: Female
  Weight: 49.49 kg

DRUGS (2)
  1. PARAGARD 380A [Suspect]
     Indication: CONTRACEPTION
     Route: 015
     Dates: start: 201010, end: 20140314
  2. CELEXA [Concomitant]
     Indication: DEPRESSION

REACTIONS (6)
  - Embedded device [Recovered/Resolved]
  - Dyspareunia [Unknown]
  - Vaginal haemorrhage [Unknown]
  - Abdominal pain [Unknown]
  - Device breakage [Recovered/Resolved]
  - Pelvic pain [Unknown]
